FAERS Safety Report 8867651 (Version 1)
Quarter: 2012Q4

REPORT INFORMATION
  Report Type: 
  Country: US (occurrence: US)
  Receive Date: 20121025
  Receipt Date: 20121025
  Transmission Date: 20130627
  Serious: No
  Sender: FDA-Public Use
  Company Number: US-AMGEN-USASP2012017780

PATIENT
  Sex: Female
  Weight: 84.81 kg

DRUGS (8)
  1. ENBREL [Suspect]
     Dosage: 50 mg, qwk
     Route: 058
  2. HUMIRA [Concomitant]
     Dosage: 40 mg, UNK
  3. METHOTREXATE [Concomitant]
     Dosage: 2.5 mg, UNK
  4. FOSAMAX [Concomitant]
     Dosage: 35 mg, UNK
  5. PREDNISONE [Concomitant]
     Dosage: 5 mg, UNK
  6. SYNTHROID [Concomitant]
     Dosage: 100 mug, UNK
  7. FOLIC ACID [Concomitant]
  8. HYDROCODONE/HOMATROPINE [Concomitant]

REACTIONS (3)
  - Injection site warmth [Unknown]
  - Injection site swelling [Unknown]
  - Injection site erythema [Unknown]
